FAERS Safety Report 8439346 (Version 2)
Quarter: 2013Q2

REPORT INFORMATION
  Report Type: Spontaneous
  Country: US (occurrence: None)
  Receive Date: 20120104
  Receipt Date: 20120508
  Transmission Date: 20140414
  Serious: Yes (Other)
  Sender: FDA-Public Use
  Company Number: 2011HGS-002856

PATIENT
  Age: 54 Year
  Sex: Female
  Weight: 74.84 kg

DRUGS (5)
  1. BENLYSTA [Suspect]
     Indication: SYSTEMIC LUPUS ERYTHEMATOSUS
     Dosage: 1 IN 28 D, INTRAVENOUS DRIP
     Route: 041
     Dates: start: 20111011, end: 20111011
  2. TOPAMAX (TOPIRAMATE) (TOPIRAMATE) [Concomitant]
  3. SEVELLA (MILNACIPRAN) (MILNACIPRAN) [Concomitant]
  4. PLAQUENIL (HYDROXYCHLOROQUINE SULFATE) (HYDROXYCHLOROQUINE SULFATE) [Concomitant]
  5. LISINOPRIL [Concomitant]

REACTIONS (2)
  - CHILLS [None]
  - BLOOD PRESSURE DECREASED [None]
